FAERS Safety Report 12904849 (Version 12)
Quarter: 2019Q2

REPORT INFORMATION
  Report Type: Spontaneous
  Country: US (occurrence: US)
  Receive Date: 20161102
  Receipt Date: 20190405
  Transmission Date: 20190711
  Serious: Yes (Hospitalization, Other)
  Sender: FDA-Public Use
  Company Number: US-ACTELION-A-NJ2016-144731

PATIENT
  Age: 58 Year
  Sex: Male
  Weight: 97.05 kg

DRUGS (4)
  1. DILTIAZEM. [Concomitant]
     Active Substance: DILTIAZEM
  2. VELETRI [Suspect]
     Active Substance: EPOPROSTENOL
     Indication: PULMONARY ARTERIAL HYPERTENSION
     Dosage: 31 NG/KG, PER MIN
     Route: 042
     Dates: start: 20160129, end: 20190321
  3. VELETRI [Suspect]
     Active Substance: EPOPROSTENOL
     Dosage: 20 NG/KG, PER MIN
     Route: 042
     Dates: end: 20190318
  4. REMODULIN [Concomitant]
     Active Substance: TREPROSTINIL
     Route: 042

REACTIONS (12)
  - Dyspnoea exertional [Not Recovered/Not Resolved]
  - Pericardial excision [Unknown]
  - Therapy change [Recovered/Resolved]
  - Palpitations [Not Recovered/Not Resolved]
  - Device related infection [Unknown]
  - Catheter placement [Unknown]
  - Diarrhoea [Unknown]
  - Hypoxia [Unknown]
  - Dyspnoea [Unknown]
  - Flushing [Unknown]
  - Pain in jaw [Unknown]
  - Cataract [Unknown]

NARRATIVE: CASE EVENT DATE: 20190321
